FAERS Safety Report 24069494 (Version 1)
Quarter: 2024Q3

REPORT INFORMATION
  Report Type: Report from Study
  Country: RO (occurrence: RO)
  Receive Date: 20240710
  Receipt Date: 20240710
  Transmission Date: 20241017
  Serious: No
  Sender: ROCHE
  Company Number: RO-ROCHE-3575730

PATIENT
  Age: 75 Year
  Sex: Female

DRUGS (1)
  1. PHESGO [Suspect]
     Active Substance: HYALURONIDASE-ZZXF\PERTUZUMAB\TRASTUZUMAB
     Indication: Breast mass
     Dosage: 1200 MG/600 MG SOLUTION FOR INJECTION * 1 VIAL 15 ML
     Route: 058
     Dates: start: 20240523

REACTIONS (5)
  - Nasopharyngitis [Unknown]
  - Cough [Unknown]
  - Oropharyngeal pain [Unknown]
  - Sneezing [Unknown]
  - Rhinorrhoea [Unknown]
